FAERS Safety Report 5796377-5 (Version None)
Quarter: 2008Q2

REPORT INFORMATION
  Report Type: 
  Country: None (occurrence: None)
  Receive Date: 20080627
  Receipt Date: 20080618
  Transmission Date: 20081010
  Serious: Yes (Hospitalization)
  Sender: FDA-Public Use
  Company Number: POMP-1000209

PATIENT
  Age: 6 Month
  Sex: Male
  Weight: 5.5 kg

DRUGS (5)
  1. MYOZYME [Suspect]
     Indication: GLYCOGEN STORAGE DISEASE TYPE II
     Dosage: 20 MG/KG, Q2W, INTRAVENOUS
     Route: 042
     Dates: start: 20070705
  2. LASIX [Concomitant]
  3. OXYGEN (OXYGEN) [Concomitant]
  4. ACETAMINOPHEN [Concomitant]
  5. MOTRIN [Concomitant]

REACTIONS (16)
  - BLOOD PRESSURE DECREASED [None]
  - CARDIAC MURMUR [None]
  - CONGESTIVE CARDIOMYOPATHY [None]
  - CONJUNCTIVITIS [None]
  - ERYTHEMA [None]
  - FATIGUE [None]
  - HEART RATE INCREASED [None]
  - HYPERCAPNIA [None]
  - HYPOTONIA [None]
  - LOBAR PNEUMONIA [None]
  - PALLOR [None]
  - PNEUMONIA ASPIRATION [None]
  - RESPIRATORY DISTRESS [None]
  - RHINORRHOEA [None]
  - SCROTAL SWELLING [None]
  - VOMITING [None]
